FAERS Safety Report 8080973-9 (Version None)
Quarter: 2012Q1

REPORT INFORMATION
  Report Type: 
  Country: None (occurrence: None)
  Receive Date: 20120130
  Receipt Date: 20120123
  Transmission Date: 20120608
  Serious: Yes (Hospitalization, Disabling)
  Sender: FDA-Public Use
  Company Number: US-MERCK-1106USA02748

PATIENT
  Age: 62 Year
  Sex: Female
  Weight: 70 kg

DRUGS (9)
  1. CALCIUM (UNSPECIFIED) AND VITAMIN D (UNSPECIFIED) [Concomitant]
     Route: 048
     Dates: start: 19990101
  2. FOSAMAX [Suspect]
     Indication: OSTEOPOROSIS
     Route: 048
     Dates: start: 19991201, end: 20010101
  3. FOSAMAX [Suspect]
     Route: 048
     Dates: start: 20010201, end: 20101001
  4. HORMONES (UNSPECIFIED) [Concomitant]
     Route: 048
     Dates: start: 19990101, end: 20080101
  5. FOSAMAX [Suspect]
     Route: 048
     Dates: start: 20010201, end: 20101001
  6. VITAMINS (UNSPECIFIED) [Concomitant]
     Indication: ROUTINE HEALTH MAINTENANCE
     Route: 048
     Dates: start: 19980101
  7. VITAMIN E [Concomitant]
     Indication: ROUTINE HEALTH MAINTENANCE
     Route: 048
  8. FOSAMAX [Suspect]
     Indication: OSTEOPENIA
     Route: 048
     Dates: start: 19991201, end: 20010101
  9. FOSAMAX [Suspect]
     Route: 048

REACTIONS (40)
  - ANAEMIA POSTOPERATIVE [None]
  - BONE DISORDER [None]
  - ARTHRALGIA [None]
  - HYPOAESTHESIA [None]
  - CELLULITIS [None]
  - PROCEDURAL HYPOTENSION [None]
  - FRACTURE DISPLACEMENT [None]
  - RHINITIS ALLERGIC [None]
  - HYPERKERATOSIS [None]
  - DEVICE FAILURE [None]
  - DEVICE DISLOCATION [None]
  - ARTHROPATHY [None]
  - FRACTURE NONUNION [None]
  - URTICARIA [None]
  - OSTEOARTHRITIS [None]
  - MUSCULOSKELETAL PAIN [None]
  - INCISION SITE ERYTHEMA [None]
  - HAEMORRHAGIC ANAEMIA [None]
  - CONCUSSION [None]
  - GASTROOESOPHAGEAL REFLUX DISEASE [None]
  - DRUG HYPERSENSITIVITY [None]
  - FEMUR FRACTURE [None]
  - ADVERSE EVENT [None]
  - ROAD TRAFFIC ACCIDENT [None]
  - MEDICAL DEVICE REMOVAL [None]
  - RECTOCELE [None]
  - INCISIONAL DRAINAGE [None]
  - TENDONITIS [None]
  - PAIN [None]
  - DENTAL CARIES [None]
  - FALL [None]
  - KNEE DEFORMITY [None]
  - BALANCE DISORDER [None]
  - PAIN IN EXTREMITY [None]
  - ABSCESS ORAL [None]
  - DERMATITIS CONTACT [None]
  - BRONCHITIS [None]
  - WOUND INFECTION STAPHYLOCOCCAL [None]
  - STAPHYLOCOCCAL INFECTION [None]
  - HAEMATOMA [None]
